FAERS Safety Report 19029622 (Version 1)
Quarter: 2021Q1

REPORT INFORMATION
  Report Type: Spontaneous
  Country: RU (occurrence: RU)
  Receive Date: 20210319
  Receipt Date: 20210319
  Transmission Date: 20210420
  Serious: Yes (Other)
  Sender: FDA-Public Use
  Company Number: RU-ABBVIE-21P-251-3819208-00

PATIENT
  Age: 18 Year

DRUGS (4)
  1. ATARAXONE [HYDROXYZINE] [Suspect]
     Active Substance: HYDROXYZINE HYDROCHLORIDE
     Indication: DEPRESSION
     Dosage: 1/4 TABLET, AFTER 2?3 DAYS FROM THE PATIENT HIMSELF INCREASED THE DOSAGE OF ATARAX
     Route: 048
  2. ATARAXONE [HYDROXYZINE] [Suspect]
     Active Substance: HYDROXYZINE HYDROCHLORIDE
     Dosage: INSTEAD OF ATARAX PRESCRIBED CHLORPROTEXENE
     Route: 048
  3. FEVARIN [Suspect]
     Active Substance: FLUVOXAMINE MALEATE
     Indication: DEPRESSION
     Route: 048
  4. FEVARIN [Suspect]
     Active Substance: FLUVOXAMINE MALEATE
     Route: 048

REACTIONS (2)
  - Suicidal ideation [Unknown]
  - Intentional product use issue [Unknown]
